FAERS Safety Report 5508061-3 (Version None)
Quarter: 2007Q4

REPORT INFORMATION
  Report Type: 
  Country: None (occurrence: None)
  Receive Date: 20071106
  Receipt Date: 20071025
  Transmission Date: 20080405
  Serious: Yes (Hospitalization)
  Sender: FDA-Public Use
  Company Number: FR-PFIZER INC-2005013837

PATIENT
  Sex: Male
  Weight: 91 kg

DRUGS (7)
  1. FELDENE [Suspect]
     Indication: INTERVERTEBRAL DISC PROTRUSION
     Dosage: DAILY DOSE:20MG-FREQ:DAILY
     Route: 048
  2. ATORVASTATIN CALCIUM [Concomitant]
  3. JOSIR [Concomitant]
  4. PERMIXON [Concomitant]
  5. DIAMICRON [Concomitant]
  6. TOCO [Concomitant]
  7. ACETAMINOPHEN W/ PROPOXYPHENE HCL [Concomitant]

REACTIONS (4)
  - ABDOMINAL PAIN UPPER [None]
  - ANAEMIA [None]
  - GASTRIC ULCER HAEMORRHAGE [None]
  - MELAENA [None]
